FAERS Safety Report 8814325 (Version 3)
Quarter: 2013Q1

REPORT INFORMATION
  Report Type: Spontaneous
  Country: US (occurrence: US)
  Receive Date: 20120928
  Receipt Date: 20130116
  Transmission Date: 20140127
  Serious: Yes (Other)
  Sender: FDA-Public Use
  Company Number: US-BRISTOL-MYERS SQUIBB COMPANY-16689150

PATIENT
  Age: 73 Year
  Sex: Female

DRUGS (4)
  1. ORENCIA [Suspect]
     Indication: RHEUMATOID ARTHRITIS
     Dosage: DURATION: 2-6 MONTHS.STARTED MAR OR APR12 LAST INF:2NOV12?ROUTE IS CHANGED TO SC(13DC12)
     Route: 042
     Dates: start: 20110909
  2. CYMBALTA [Concomitant]
  3. HYDROCHLOROTHIAZIDE [Concomitant]
  4. CLONAZEPAM [Concomitant]

REACTIONS (4)
  - Eyelid ptosis [Unknown]
  - Cataract [Unknown]
  - Arthropathy [Unknown]
  - Localised infection [Recovered/Resolved]
